FAERS Safety Report 11867296 (Version 2)
Quarter: 2016Q1

REPORT INFORMATION
  Report Type: Report from Study
  Country: US (occurrence: US)
  Receive Date: 20151224
  Receipt Date: 20160114
  Transmission Date: 20160526
  Serious: Yes (Death, Hospitalization, Other)
  Sender: FDA-Public Use
  Company Number: US-AMGEN-USASL2015136579

PATIENT
  Age: 84 Year
  Sex: Female

DRUGS (3)
  1. PROLIA [Suspect]
     Active Substance: DENOSUMAB
     Indication: PRODUCT USED FOR UNKNOWN INDICATION
     Dosage: UNK
     Route: 065
     Dates: end: 20150819
  2. ATIVAN [Concomitant]
     Active Substance: LORAZEPAM
  3. HALDOL [Concomitant]
     Active Substance: HALOPERIDOL

REACTIONS (20)
  - Ecchymosis [Unknown]
  - Splenomegaly [Unknown]
  - Decreased appetite [Unknown]
  - Dyspnoea [Recovering/Resolving]
  - Haemoglobin decreased [Unknown]
  - Delirium [Unknown]
  - Asthenia [Unknown]
  - Pain [Recovering/Resolving]
  - Upper respiratory tract congestion [Unknown]
  - Fall [Unknown]
  - Nausea [Unknown]
  - Blood glucose increased [Unknown]
  - Confusional state [Unknown]
  - Petechiae [Unknown]
  - White blood cell count increased [Unknown]
  - Death [Fatal]
  - Acute kidney injury [Unknown]
  - Abdominal pain [Unknown]
  - Restlessness [Unknown]
  - Skin discolouration [Unknown]

NARRATIVE: CASE EVENT DATE: 20150823
